FAERS Safety Report 7232911-6 (Version None)
Quarter: 2011Q1

REPORT INFORMATION
  Report Type: 
  Country: None (occurrence: None)
  Receive Date: 20110119
  Receipt Date: 20110110
  Transmission Date: 20110831
  Serious: Yes (Other)
  Sender: FDA-Public Use
  Company Number: PHHY2010DE78449

PATIENT
  Sex: Female
  Weight: 50 kg

DRUGS (2)
  1. ACLASTA [Suspect]
     Indication: OSTEOPOROSIS
     Dosage: 5 MG, UNK
     Dates: start: 20100914
  2. ALENDRONIC ACID [Concomitant]
     Dosage: UNK
     Dates: start: 20070101

REACTIONS (1)
  - THORACIC VERTEBRAL FRACTURE [None]
